FAERS Safety Report 5262430-8 (Version None)
Quarter: 2007Q1

REPORT INFORMATION
  Report Type: 
  Country: None (occurrence: None)
  Receive Date: 20070312
  Receipt Date: 20070306
  Transmission Date: 20070707
  Serious: Yes (Other)
  Sender: FDA-Public Use
  Company Number: US-BRISTOL-MYERS SQUIBB COMPANY-13703459

PATIENT
  Age: 42 Year
  Sex: Female
  Weight: 74 kg

DRUGS (3)
  1. CISPLATIN [Suspect]
     Indication: OVARIAN CANCER
  2. CYCLOPHOSPHAMIDE [Suspect]
     Indication: OVARIAN CANCER
  3. ADRIAMYCIN PFS [Suspect]
     Indication: OVARIAN CANCER

REACTIONS (1)
  - GITELMAN'S SYNDROME [None]
